FAERS Safety Report 24384859 (Version 4)
Quarter: 2025Q1

REPORT INFORMATION
  Report Type: Report from Study
  Country: US (occurrence: US)
  Receive Date: 20241001
  Receipt Date: 20250327
  Transmission Date: 20250408
  Serious: Yes (Other)
  Sender: AVADEL CNS PHARMACEUTICALS, LLC
  Company Number: US-AVADEL CNS PHARMACEUTICALS, LLC-2024AVA01760

PATIENT
  Sex: Male
  Weight: 123.36 kg

DRUGS (3)
  1. LUMRYZ [Suspect]
     Active Substance: SODIUM OXYBATE
     Indication: Narcolepsy
     Dosage: 9 G, ONCE NIGHTLY
     Route: 048
     Dates: start: 20231019
  2. LUMRYZ [Suspect]
     Active Substance: SODIUM OXYBATE
     Indication: Sleep disorder
     Dosage: 9 G, ONCE NIGHTLY
     Route: 048
  3. ALCOHOL [Concomitant]
     Active Substance: ALCOHOL

REACTIONS (10)
  - Nephrolithiasis [Recovered/Resolved]
  - Ear infection [Not Recovered/Not Resolved]
  - Sinusitis [Not Recovered/Not Resolved]
  - Vertigo [Not Recovered/Not Resolved]
  - Insomnia [Unknown]
  - Weight decreased [Not Recovered/Not Resolved]
  - Anxiety [Unknown]
  - Depressed mood [Unknown]
  - Headache [Unknown]
  - Paraesthesia [Unknown]

NARRATIVE: CASE EVENT DATE: 20240101
